FAERS Safety Report 5933314-4 (Version None)
Quarter: 2008Q4

REPORT INFORMATION
  Report Type: 
  Country: None (occurrence: None)
  Receive Date: 20081028
  Receipt Date: 20081021
  Transmission Date: 20090506
  Serious: Yes (Death)
  Sender: FDA-Public Use
  Company Number: US-GENENTECH-269126

PATIENT

DRUGS (8)
  1. RITUXAN [Suspect]
     Indication: MANTLE CELL LYMPHOMA
     Dosage: 375 MG/M2, UNK
  2. CYCLOPHOSPHAMIDE [Suspect]
     Indication: MANTLE CELL LYMPHOMA
     Dosage: 300 MG/M2, UNK
     Route: 042
  3. MESNA [Suspect]
     Indication: MANTLE CELL LYMPHOMA
     Dosage: 600 MG/M2, UNK
     Route: 042
  4. DOXORUBICIN HCL [Suspect]
     Indication: MANTLE CELL LYMPHOMA
     Dosage: 16.7 MG/M2, UNK
     Route: 042
  5. VINCRISTINE [Suspect]
     Indication: MANTLE CELL LYMPHOMA
     Dosage: 1.4 MG/M2, UNK
     Route: 042
  6. DEXAMETHASONE 4MG TAB [Suspect]
     Indication: MANTLE CELL LYMPHOMA
     Dosage: 40 MG, UNK
  7. METHOTREXATE [Suspect]
     Indication: MANTLE CELL LYMPHOMA
     Dosage: 200 MG/M2, UNK
     Route: 042
  8. CYTARABINE [Suspect]
     Indication: MANTLE CELL LYMPHOMA
     Dosage: 3000 MG/M2, UNK
     Route: 042

REACTIONS (1)
  - NEUTROPENIC SEPSIS [None]
